FAERS Safety Report 5297793-0 (Version None)
Quarter: 2007Q2

REPORT INFORMATION
  Report Type: 
  Country: None (occurrence: None)
  Receive Date: 20070416
  Receipt Date: 20070406
  Transmission Date: 20071010
  Serious: Yes (Hospitalization)
  Sender: FDA-Public Use
  Company Number: FR-ABBOTT-07P-056-0361705-00

PATIENT
  Sex: Male

DRUGS (12)
  1. NAXY COMPRIMES [Suspect]
     Indication: BRONCHITIS
     Route: 048
     Dates: start: 20070110, end: 20070116
  2. FLUINDIONE [Suspect]
     Indication: ATRIAL FIBRILLATION
     Route: 048
     Dates: end: 20070101
  3. FLUINDIONE [Suspect]
     Dates: start: 20070101
  4. PARACETAMOL [Concomitant]
     Indication: BRONCHITIS
  5. CARBOCISTEINE [Concomitant]
     Indication: BRONCHITIS
  6. RAMIPRIL [Concomitant]
     Indication: HYPERTENSION
  7. BISOPRODOL FUMARATE [Concomitant]
     Indication: HYPERTENSION
  8. CHRONADALATE LP [Concomitant]
     Indication: HYPERTENSION
  9. GLICLAZIDE [Concomitant]
     Indication: DIABETES MELLITUS NON-INSULIN-DEPENDENT
  10. FENOFIBRATE [Concomitant]
     Indication: HYPERLIPIDAEMIA
  11. LEVOTHYROXINE SODIUM [Concomitant]
     Indication: THYROID NEOPLASM
  12. AVANDAMET [Concomitant]
     Indication: DIABETES MELLITUS NON-INSULIN-DEPENDENT

REACTIONS (4)
  - ABDOMINAL PAIN [None]
  - ABDOMINAL PAIN LOWER [None]
  - INTERNATIONAL NORMALISED RATIO INCREASED [None]
  - MUSCLE HAEMORRHAGE [None]
